FAERS Safety Report 17897913 (Version 3)
Quarter: 2021Q2

REPORT INFORMATION
  Report Type: Report from Study
  Country: None (occurrence: US)
  Receive Date: 20200616
  Receipt Date: 20210413
  Transmission Date: 20210717
  Serious: Yes (Hospitalization)
  Sender: FDA-Public Use
  Company Number: US-ABBVIE-20K-163-3443954-00

PATIENT
  Age: 73 Year
  Sex: Female

DRUGS (2)
  1. HUMIRA [Suspect]
     Active Substance: ADALIMUMAB
     Indication: RHEUMATOID ARTHRITIS
     Route: 058
  2. HUMIRA [Suspect]
     Active Substance: ADALIMUMAB
     Indication: CROHN^S DISEASE

REACTIONS (5)
  - Respiratory failure [Unknown]
  - Chronic obstructive pulmonary disease [Recovering/Resolving]
  - Cardiac failure congestive [Unknown]
  - SARS-CoV-2 test positive [Unknown]
  - Colonoscopy [Unknown]

NARRATIVE: CASE EVENT DATE: 20210406
